FAERS Safety Report 10766484 (Version 6)
Quarter: 2020Q1

REPORT INFORMATION
  Report Type: Report from Study
  Country: US (occurrence: US)
  Receive Date: 20150205
  Receipt Date: 20200130
  Transmission Date: 20200409
  Serious: Yes (Disabling, Other)
  Sender: FDA-Public Use
  Company Number: US-SA-2014SA001259

PATIENT
  Age: 54 Year
  Sex: Female
  Weight: 72.57 kg

DRUGS (7)
  1. TERIFLUNOMIDE. [Suspect]
     Active Substance: TERIFLUNOMIDE
     Dosage: 14 MG,QD
     Route: 048
     Dates: start: 20140110, end: 20150128
  2. VITAMIN D3 [Concomitant]
     Active Substance: CHOLECALCIFEROL
     Dosage: 5000 IU,QD
     Route: 065
     Dates: start: 2010
  3. TERIFLUNOMIDE. [Suspect]
     Active Substance: TERIFLUNOMIDE
     Indication: MULTIPLE SCLEROSIS
     Dosage: 14 MG,QD
     Route: 048
     Dates: start: 20131217
  4. WELCHOL [Concomitant]
     Active Substance: COLESEVELAM HYDROCHLORIDE
     Indication: CHOLECYSTECTOMY
     Dosage: UNK
     Route: 065
  5. NITROFURANTOIN. [Concomitant]
     Active Substance: NITROFURANTOIN
     Indication: URINARY TRACT INFECTION
     Dosage: 50 MG,HS
     Route: 065
     Dates: start: 2008
  6. NITROFURANTOIN. [Concomitant]
     Active Substance: NITROFURANTOIN
     Indication: INFECTION PROPHYLAXIS
     Dosage: 50 MG,UNK
     Route: 065
     Dates: start: 2007
  7. OXYBUTYNIN. [Concomitant]
     Active Substance: OXYBUTYNIN CHLORIDE
     Indication: NOCTURIA
     Dosage: 5 MG,HS
     Route: 065
     Dates: start: 2008

REACTIONS (15)
  - Pain [Not Recovered/Not Resolved]
  - Muscular weakness [Unknown]
  - Joint injury [Unknown]
  - Walking aid user [Not Recovered/Not Resolved]
  - Nausea [Recovered/Resolved]
  - Nervousness [Unknown]
  - Insomnia [Unknown]
  - Ear infection [Unknown]
  - Diarrhoea [Recovered/Resolved]
  - Malaise [Unknown]
  - Defaecation urgency [Recovered/Resolved]
  - Muscle spasms [Recovered/Resolved]
  - Fatigue [Unknown]
  - Stress [Unknown]
  - Fall [Unknown]

NARRATIVE: CASE EVENT DATE: 2014
